FAERS Safety Report 15800542 (Version 5)
Quarter: 2019Q1

REPORT INFORMATION
  Report Type: Spontaneous
  Country: US (occurrence: US)
  Receive Date: 20190108
  Receipt Date: 20190211
  Transmission Date: 20190417
  Serious: Yes (Hospitalization, Other)
  Sender: FDA-Public Use
  Company Number: US-CONCORDIA PHARMACEUTICALS INC.-GSH201901-000043

PATIENT
  Age: 60 Year
  Sex: Male

DRUGS (10)
  1. HYDROXYCHLOROQUINE [Suspect]
     Active Substance: HYDROXYCHLOROQUINE
     Indication: KERATOSIS FOLLICULAR
     Route: 065
  2. ACITRETIN. [Suspect]
     Active Substance: ACITRETIN
     Indication: KERATOSIS FOLLICULAR
     Route: 065
  3. 5-FLUOROURACIL [Suspect]
     Active Substance: FLUOROURACIL
     Indication: KERATOSIS FOLLICULAR
     Route: 065
  4. HYDROXYCHLOROQUINE [Suspect]
     Active Substance: HYDROXYCHLOROQUINE
     Indication: KERATOSIS FOLLICULAR
  5. ACITRETIN. [Suspect]
     Active Substance: ACITRETIN
     Indication: KERATOSIS FOLLICULAR
  6. MYCOPHENOLATE MOFETIL. [Suspect]
     Active Substance: MYCOPHENOLATE MOFETIL
     Indication: KERATOSIS FOLLICULAR
  7. ISOTRETINOIN. [Suspect]
     Active Substance: ISOTRETINOIN
     Indication: KERATOSIS FOLLICULAR
  8. 5-FLUOROURACIL [Suspect]
     Active Substance: FLUOROURACIL
     Indication: KERATOSIS FOLLICULAR
  9. ISOTRETINOIN. [Suspect]
     Active Substance: ISOTRETINOIN
     Indication: KERATOSIS FOLLICULAR
     Route: 065
  10. MYCOPHENOLATE MOFETIL. [Suspect]
     Active Substance: MYCOPHENOLATE MOFETIL
     Indication: KERATOSIS FOLLICULAR
     Route: 065

REACTIONS (4)
  - Herpes simplex [Recovering/Resolving]
  - Drug effect incomplete [Unknown]
  - Off label use [Unknown]
  - Staphylococcal infection [Recovering/Resolving]
